FAERS Safety Report 5246249-X (Version None)
Quarter: 2007Q1

REPORT INFORMATION
  Report Type: 
  Country: None (occurrence: None)
  Receive Date: 20070221
  Receipt Date: 20070209
  Transmission Date: 20070707
  Serious: Yes (Hospitalization)
  Sender: FDA-Public Use
  Company Number: 028-C5013-07011216

PATIENT
  Age: 67 Year
  Sex: Female
  Weight: 67.7 kg

DRUGS (4)
  1. CC-5013 (LENALIDOMIDE) (CAPSULES) [Suspect]
     Indication: MULTIPLE MYELOMA
     Dosage: 25 MG, DAILY ON DAYS 1-21 OF 28 DAY CYCLE, ORAL
     Route: 048
     Dates: start: 20060124, end: 20070121
  2. DEXAMETHASONE TAB [Suspect]
     Indication: MULTIPLE MYELOMA
     Dosage: 20 MG, DAILY ON DAYS 1-4
     Dates: start: 20060124
  3. GABAPENTIN [Concomitant]
  4. LANTANOPROST [Concomitant]

REACTIONS (9)
  - ATELECTASIS [None]
  - BLOOD CHLORIDE DECREASED [None]
  - HAEMOGLOBIN DECREASED [None]
  - HYPOCALCAEMIA [None]
  - HYPOKALAEMIA [None]
  - HYPOPHOSPHATAEMIA [None]
  - PULMONARY HYPERTENSION [None]
  - PULMONARY OEDEMA [None]
  - RESPIRATORY SYNCYTIAL VIRUS INFECTION [None]
